FAERS Safety Report 4263841-X (Version None)
Quarter: 2004Q1

REPORT INFORMATION
  Report Type: 
  Country: None (occurrence: None)
  Receive Date: 20040102
  Receipt Date: 20031218
  Transmission Date: 20041129
  Serious: Yes (Death, Hospitalization)
  Sender: FDA-Public Use
  Company Number: BRO-006882

PATIENT
  Age: 87 Year
  Sex: Male

DRUGS (7)
  1. IOPAMIDOL-370 [Suspect]
     Indication: ARTERIOGRAM CORONARY
     Dosage: 185 ML INTRACORONARY
     Route: 022
     Dates: start: 20031016, end: 20031016
  2. ASPIRIN [Concomitant]
  3. TICLOPIDINE HCL [Concomitant]
  4. SIGMART, (NICORANDIL) [Concomitant]
  5. ISOSORBIDE DINITRATE [Concomitant]
  6. HOKUNALIN (TULOBUTEROL HYDROCHLORIDE) [Concomitant]
  7. MYSLEE [Concomitant]

REACTIONS (13)
  - ACUTE PULMONARY OEDEMA [None]
  - AORTIC DISSECTION [None]
  - ATRIAL FLUTTER [None]
  - BLOOD PRESSURE DECREASED [None]
  - CARDIAC ARREST [None]
  - DYSPNOEA [None]
  - ELECTROCARDIOGRAM T WAVE INVERSION [None]
  - FEELING ABNORMAL [None]
  - LOSS OF CONSCIOUSNESS [None]
  - LUNG INFILTRATION [None]
  - OXYGEN SATURATION DECREASED [None]
  - RALES [None]
  - STRIDOR [None]
